FAERS Safety Report 16918034 (Version 1)
Quarter: 2019Q4

REPORT INFORMATION
  Report Type: Spontaneous
  Country: GB (occurrence: GB)
  Receive Date: 20191015
  Receipt Date: 20191015
  Transmission Date: 20200122
  Serious: Yes (Other)
  Sender: FDA-Public Use
  Company Number: GB-TEVA-2019-GB-1120562

PATIENT
  Sex: Female

DRUGS (1)
  1. METOCLOPRAMIDE. [Suspect]
     Active Substance: METOCLOPRAMIDE
     Indication: GASTROOESOPHAGEAL REFLUX DISEASE
     Dosage: 30 MG
     Dates: start: 2016

REACTIONS (9)
  - Anxiety [Unknown]
  - Feeling abnormal [Unknown]
  - Paraesthesia [Unknown]
  - Discomfort [Unknown]
  - Pain [Unknown]
  - Temperature intolerance [Unknown]
  - Tardive dyskinesia [Unknown]
  - Tremor [Unknown]
  - Akathisia [Unknown]
